FAERS Safety Report 7360197-0 (Version None)
Quarter: 2011Q1

REPORT INFORMATION
  Report Type: 
  Country: None (occurrence: None)
  Receive Date: 20110318
  Receipt Date: 20110303
  Transmission Date: 20110831
  Serious: Yes (Hospitalization)
  Sender: FDA-Public Use
  Company Number: DE-RANBAXY-2011RR-42882

PATIENT
  Age: 34 Year
  Sex: Female

DRUGS (5)
  1. AZITHROMYCIN [Suspect]
     Indication: BACTERIAL INFECTION
     Dosage: 500 MG, QD
     Route: 048
  2. FLUCONAZOLE [Concomitant]
     Indication: BACTERIAL INFECTION
  3. ANIDULAFUNGIN [Concomitant]
     Indication: ANTIBIOTIC THERAPY
  4. CEFUROXIME [Suspect]
     Indication: BACTERIAL INFECTION
     Dosage: 250 MG, BID
     Route: 048
  5. MOXIFLOXACIN [Concomitant]
     Indication: ANTIBIOTIC THERAPY

REACTIONS (2)
  - TOXIC EPIDERMAL NECROLYSIS [None]
  - DRUG INTERACTION [None]
